FAERS Safety Report 4603882-3 (Version None)
Quarter: 2005Q1

REPORT INFORMATION
  Report Type: 
  Country: None (occurrence: None)
  Receive Date: 20050308
  Receipt Date: 20050223
  Transmission Date: 20050727
  Serious: Yes (Hospitalization)
  Sender: FDA-Public Use
  Company Number: HQWYE610425FEB05

PATIENT
  Age: 60 Year
  Sex: Male
  Weight: 110.32 kg

DRUGS (8)
  1. RAPAMUNE [Suspect]
     Indication: PROPHYLAXIS AGAINST TRANSPLANT REJECTION
     Dosage: 8 MG 1X PER 1 DAY, ORAL
     Route: 048
     Dates: start: 20040614
  2. TACROLIMUS             (TACROLIMUS) [Concomitant]
  3. PREDNISONE [Concomitant]
  4. HYDROCHLOROTHIAZIDE [Concomitant]
  5. LABETALOL HCL [Concomitant]
  6. LIPITOR [Concomitant]
  7. BACTRIM [Concomitant]
  8. INSULIN [Concomitant]

REACTIONS (2)
  - DRUG INEFFECTIVE [None]
  - KIDNEY TRANSPLANT REJECTION [None]
